FAERS Safety Report 5480243-9 (Version None)
Quarter: 2007Q4

REPORT INFORMATION
  Report Type: 
  Country: None (occurrence: None)
  Receive Date: 20071003
  Receipt Date: 20070919
  Transmission Date: 20080405
  Serious: Yes (Hospitalization)
  Sender: FDA-Public Use
  Company Number: PAR_01745_2007

PATIENT
  Age: 76 Year
  Sex: Female

DRUGS (4)
  1. IBUPROFEN [Suspect]
     Indication: OSTEOARTHRITIS
     Dosage: (DF)
  2. CALCIUM CARBONATE (CALCIUM CARBONATE) [Suspect]
     Indication: DYSPEPSIA
     Dosage: (5.5 G ORAL)
     Route: 048
  3. SALBUTAMOL [Concomitant]
  4. CALCIUM CHANNEL BLOCKERS [Concomitant]

REACTIONS (2)
  - CHANGE OF BOWEL HABIT [None]
  - HYPERCALCAEMIA [None]
